FAERS Safety Report 26001463 (Version 1)
Quarter: 2025Q4

REPORT INFORMATION
  Report Type: Spontaneous
  Country: US (occurrence: None)
  Receive Date: 20251105
  Receipt Date: 20251105
  Transmission Date: 20260117
  Serious: Yes (Other)
  Sender: FDA-CTU
  Company Number: None

PATIENT
  Sex: Female

DRUGS (10)
  1. TEZSPIRE [Suspect]
     Active Substance: TEZEPELUMAB-EKKO
     Dosage: OTHER FREQUENCY : ONCE EVERY FOUR WEEKS;?
     Route: 058
     Dates: start: 20250919
  2. ALBUTEROL AER HFA [Concomitant]
  3. ATORVASTATIN TAB 10MG [Concomitant]
  4. GABAPENTIN [Concomitant]
     Active Substance: GABAPENTIN
  5. MAGNESIUM CAP 125MG [Concomitant]
  6. OLM MED/HCTZ TAB 20-12.5 [Concomitant]
  7. PANTOPRAZOLE SODIUM [Concomitant]
     Active Substance: PANTOPRAZOLE SODIUM
  8. POT CHLORIDE TAB 10MEQ ER [Concomitant]
  9. PREDNISONE [Concomitant]
     Active Substance: PREDNISONE
  10. TRULANCE TAB3MG [Concomitant]

REACTIONS (1)
  - Colon cancer [None]
